FAERS Safety Report 9984303 (Version 1)
Quarter: 2014Q1

REPORT INFORMATION
  Report Type: Spontaneous
  Country: US (occurrence: US)
  Receive Date: 20140307
  Receipt Date: 20140307
  Transmission Date: 20141002
  Serious: Yes (Other)
  Sender: FDA-Public Use
  Company Number: US-LUNDBECK-DKLU1097957

PATIENT
  Sex: Female

DRUGS (1)
  1. SABRIL (FOR ORAL SOLUTION) [Suspect]
     Indication: INFANTILE SPASMS
     Dates: end: 20140225

REACTIONS (6)
  - Opisthotonus [Unknown]
  - Hyporesponsive to stimuli [Unknown]
  - Joint lock [Unknown]
  - Clumsiness [Unknown]
  - Social avoidant behaviour [Unknown]
  - Somnolence [Unknown]
